FAERS Safety Report 11510388 (Version 1)
Quarter: 2015Q3

REPORT INFORMATION
  Report Type: Spontaneous
  Country: US (occurrence: US)
  Receive Date: 20150915
  Receipt Date: 20150915
  Transmission Date: 20151125
  Serious: No
  Sender: FDA-Public Use
  Company Number: US-JNJFOC-20150819878

PATIENT
  Age: 72 Year
  Sex: Female
  Weight: 68.04 kg

DRUGS (4)
  1. TYLENOL EXTRA STRENGTH [Suspect]
     Active Substance: ACETAMINOPHEN
     Indication: PAIN
     Route: 048
     Dates: start: 20150824
  2. BENADRYL TOPICAL ITCH STOPPING GEL [Concomitant]
     Indication: DERMATITIS CONTACT
     Route: 061
     Dates: start: 20150821
  3. EQUATE DIPHENHYDRAMINE [Concomitant]
     Indication: URTICARIA
     Dosage: 4 TSP
     Route: 048
     Dates: start: 20150821
  4. METHYLPREDNISOLONE. [Concomitant]
     Active Substance: METHYLPREDNISOLONE
     Indication: RASH
     Route: 065
     Dates: start: 20150823

REACTIONS (3)
  - Incorrect dose administered [Unknown]
  - Dermatitis contact [Not Recovered/Not Resolved]
  - Urticaria [Not Recovered/Not Resolved]

NARRATIVE: CASE EVENT DATE: 20150825
